FAERS Safety Report 24865910 (Version 2)
Quarter: 2025Q1

REPORT INFORMATION
  Report Type: Spontaneous
  Country: JP (occurrence: JP)
  Receive Date: 20250121
  Receipt Date: 20250226
  Transmission Date: 20250409
  Serious: Yes (Death, Hospitalization, Other)
  Sender: GILEAD
  Company Number: JP-GILEAD-2024-0698163

PATIENT
  Age: 9 Decade
  Sex: Female

DRUGS (2)
  1. TRODELVY [Suspect]
     Active Substance: SACITUZUMAB GOVITECAN-HZIY
     Indication: Product used for unknown indication
     Route: 065
     Dates: start: 20241202
  2. TRODELVY [Suspect]
     Active Substance: SACITUZUMAB GOVITECAN-HZIY
     Route: 065
     Dates: start: 202412

REACTIONS (4)
  - Anaemia [Recovered/Resolved]
  - Asthenia [Unknown]
  - Pneumonia influenzal [Fatal]
  - Influenza [Unknown]

NARRATIVE: CASE EVENT DATE: 20241201
